FAERS Safety Report 9633492 (Version 1)
Quarter: 2013Q4

REPORT INFORMATION
  Report Type: Spontaneous
  Country: US (occurrence: None)
  Receive Date: 20131018
  Receipt Date: 20131018
  Transmission Date: 20140711
  Serious: Yes (Other)
  Sender: FDA-Public Use
  Company Number: None

PATIENT
  Age: 72 Year
  Sex: Female
  Weight: 63.5 kg

DRUGS (5)
  1. ZYCLARA [Suspect]
     Indication: PRECANCEROUS SKIN LESION
     Dosage: NET WEIGHT 7.5 G?1 PUSH OF THE PUMP?EVERY OTHER NIGHT?
     Route: 061
     Dates: start: 20130711, end: 20130812
  2. ATENOLOL [Concomitant]
  3. ESTRADIOL [Concomitant]
  4. VITAMIN D [Concomitant]
  5. BABY ASPERINE [Concomitant]

REACTIONS (3)
  - Application site erythema [None]
  - Application site pain [None]
  - Application site pruritus [None]
